FAERS Safety Report 4626418-X (Version None)
Quarter: 2005Q1

REPORT INFORMATION
  Report Type: 
  Country: None (occurrence: None)
  Receive Date: 20050330
  Receipt Date: 20050315
  Transmission Date: 20050727
  Serious: Yes (Other)
  Sender: FDA-Public Use
  Company Number: USA050393220

PATIENT
  Age: 60 Year
  Sex: Female
  Weight: 80 kg

DRUGS (4)
  1. HUMALOG [Suspect]
     Dosage: 35 U/2 DAY
     Dates: start: 19990101
  2. HUMULIN N [Suspect]
     Dosage: 75 U/2 DAY
     Dates: start: 19990101
  3. VITAMINS [Concomitant]
  4. TUMS (CALCIUM CARBONATE) [Concomitant]

REACTIONS (4)
  - CATARACT [None]
  - DIALYSIS [None]
  - EYE HAEMORRHAGE [None]
  - RENAL FAILURE [None]
